FAERS Safety Report 22277492 (Version 2)
Quarter: 2023Q2

REPORT INFORMATION
  Report Type: Spontaneous
  Country: US (occurrence: US)
  Receive Date: 20230503
  Receipt Date: 20230505
  Transmission Date: 20230722
  Serious: Yes (Other)
  Sender: FDA-Public Use
  Company Number: US-ORGANON-O2304USA002974

PATIENT
  Age: 30 Year
  Sex: Female
  Weight: 63.492 kg

DRUGS (1)
  1. NEXPLANON [Suspect]
     Active Substance: ETONOGESTREL
     Indication: Contraception
     Dosage: 1 IMPLANT, ONE EVERY THREE YEARS,IN  LEFT ARM
     Route: 059
     Dates: start: 20230314

REACTIONS (2)
  - Pregnancy with contraceptive device [Not Recovered/Not Resolved]
  - Unintended pregnancy [Not Recovered/Not Resolved]

NARRATIVE: CASE EVENT DATE: 20230401
